FAERS Safety Report 4599795-6 (Version None)
Quarter: 2005Q1

REPORT INFORMATION
  Report Type: 
  Country: None (occurrence: None)
  Receive Date: 20050303
  Receipt Date: 20050217
  Transmission Date: 20050727
  Serious: Yes (Hospitalization)
  Sender: FDA-Public Use
  Company Number: 2004AP06087

PATIENT
  Age: 66 Year
  Sex: Male
  Weight: 58 kg

DRUGS (9)
  1. IRESSA [Suspect]
     Indication: LUNG ADENOCARCINOMA
     Dosage: 250 MG DAILY PO
     Route: 048
     Dates: start: 20041116, end: 20041119
  2. IRESSA [Suspect]
     Indication: SQUAMOUS CELL CARCINOMA
     Dosage: 250 MG DAILY PO
     Route: 048
     Dates: start: 20041116, end: 20041119
  3. IRESSA [Suspect]
     Indication: LUNG ADENOCARCINOMA
     Dosage: 250 MG QOD PO
     Route: 048
     Dates: start: 20041122
  4. IRESSA [Suspect]
     Indication: SQUAMOUS CELL CARCINOMA
     Dosage: 250 MG QOD PO
     Route: 048
     Dates: start: 20041122
  5. ACINON [Concomitant]
  6. CODEINE PHOSPHATE [Concomitant]
  7. CISPLATIN [Concomitant]
  8. GEMCITABINE [Concomitant]
  9. TAXOTERE [Concomitant]

REACTIONS (1)
  - WHITE BLOOD CELL COUNT DECREASED [None]
